FAERS Safety Report 22191654 (Version 1)
Quarter: 2023Q2

REPORT INFORMATION
  Report Type: Other
  Country: CA (occurrence: CA)
  Receive Date: 20230410
  Receipt Date: 20230410
  Transmission Date: 20230721
  Serious: Yes (Other)
  Sender: FDA-Public Use
  Company Number: CA-APOTEX-2023AP006497

PATIENT
  Age: 21 Year
  Sex: Female

DRUGS (1)
  1. DROSPIRENONE\ETHINYL ESTRADIOL [Suspect]
     Active Substance: DROSPIRENONE\ETHINYL ESTRADIOL
     Indication: Contraception
     Dosage: UNK
     Route: 048

REACTIONS (5)
  - Palpitations [Unknown]
  - Polycystic ovaries [Unknown]
  - Pulmonary infarction [Unknown]
  - Chest pain [Unknown]
  - Pulmonary embolism [Unknown]
